FAERS Safety Report 19233454 (Version 1)
Quarter: 2021Q2

REPORT INFORMATION
  Report Type: Spontaneous
  Country: GB (occurrence: GB)
  Receive Date: 20210507
  Receipt Date: 20210507
  Transmission Date: 20210717
  Serious: Yes (Other)
  Sender: FDA-Public Use
  Company Number: GB-TEVA-2021-GB-1907553

PATIENT
  Age: 49 Year
  Sex: Female
  Weight: 80 kg

DRUGS (10)
  1. NORETHISTERONE [Concomitant]
     Active Substance: NORETHINDRONE
     Dosage: 1 DOSAGE FORMS
     Route: 048
     Dates: start: 20210414
  2. FERROUS SULFATE. [Concomitant]
     Active Substance: FERROUS SULFATE
     Dosage: 14 DOSAGE FORMS
     Route: 048
     Dates: start: 20210414
  3. SALBUTAMOL [Concomitant]
     Active Substance: ALBUTEROL
     Dosage: ACTUATION, 2 DOSAGE FORMS
     Dates: start: 20210414
  4. CLENIL MODULITE [Concomitant]
     Active Substance: BECLOMETHASONE DIPROPIONATE
     Dosage: ACTUATION, 1 DOSAGE FORMS
     Dates: start: 20210414
  5. QUETIAPINE. [Concomitant]
     Active Substance: QUETIAPINE
     Dosage: 1 DOSAGE FORMS
     Route: 048
     Dates: start: 20210414
  6. ATORVASTATIN [Concomitant]
     Active Substance: ATORVASTATIN
     Dosage: 1 DOSAGE FORMS
     Route: 048
     Dates: start: 20210414
  7. THIAMINE. [Concomitant]
     Active Substance: THIAMINE
     Dosage: 100 MG
     Dates: start: 20210414
  8. VITAMIN B SUBSTANCES [Concomitant]
     Dosage: 1 AMPOULE PAIR UNCHECKED UNITS, 1 DOSAGE FORMS
     Dates: start: 20210413
  9. VITAMIN C [Concomitant]
     Active Substance: ASCORBIC ACID
     Dosage: 1 AMPOULE PAIR UNCHECKED UNITS, 1 DOSAGE FORMS
     Dates: start: 20210413
  10. METFORMIN [Suspect]
     Active Substance: METFORMIN HYDROCHLORIDE
     Dosage: 500 MG
     Route: 048

REACTIONS (1)
  - Pruritus [Recovering/Resolving]
